FAERS Safety Report 22632877 (Version 2)
Quarter: 2025Q4

REPORT INFORMATION
  Report Type: Report from Study
  Country: US (occurrence: US)
  Receive Date: 20230623
  Receipt Date: 20251107
  Transmission Date: 20260118
  Serious: No
  Sender: AIMMUNE
  Company Number: US-ZENPEP LLC-2023AIMT00585

PATIENT

DRUGS (5)
  1. ZENPEP [Suspect]
     Active Substance: PANCRELIPASE AMYLASE\PANCRELIPASE LIPASE\PANCRELIPASE PROTEASE
     Indication: Pancreatic failure
     Dosage: 40 000 USP UNITS, 2 CAPSULES WITH EACH MEAL
     Route: 048
     Dates: start: 202304, end: 20230606
  2. ZENPEP [Suspect]
     Active Substance: PANCRELIPASE AMYLASE\PANCRELIPASE LIPASE\PANCRELIPASE PROTEASE
     Dosage: 40 000 USP UNITS, 2 CAPSULES WITH EACH MEAL, LAST DOSE PRIOR TO EVENT
     Route: 048
     Dates: start: 202304, end: 202304
  3. ZENPEP [Suspect]
     Active Substance: PANCRELIPASE AMYLASE\PANCRELIPASE LIPASE\PANCRELIPASE PROTEASE
     Dosage: 20 000 USP UNITS, WITH EACH MEAL AND ONE WITH SNACK, DOSE DECREASED
     Route: 048
     Dates: start: 20230607
  4. ZENPEP [Suspect]
     Active Substance: PANCRELIPASE AMYLASE\PANCRELIPASE LIPASE\PANCRELIPASE PROTEASE
     Dosage: 20 000 USP UNITS, ONCE, LAST DOSE PRIOR UNSPECIFIED PROBLEMS
     Route: 048
  5. ZENPEP [Suspect]
     Active Substance: PANCRELIPASE AMYLASE\PANCRELIPASE LIPASE\PANCRELIPASE PROTEASE
     Dosage: UNK, DOSE DECREASED
     Route: 048

REACTIONS (3)
  - Adverse drug reaction [Unknown]
  - Constipation [Recovered/Resolved]
  - Diarrhoea [Recovering/Resolving]

NARRATIVE: CASE EVENT DATE: 20230101
